FAERS Safety Report 9491504 (Version 2)
Quarter: 2013Q1

REPORT INFORMATION
  Report Type: Not Available
  Country: US (occurrence: US)
  Receive Date: 20121219
  Receipt Date: 20121219
  Transmission Date: 20140127
  Serious: Yes (Hospitalization)
  Sender: FDA-Public Use
  Company Number: US-LUNDBECK-DKLU1066274

PATIENT
  Age: 7 None
  Sex: Female
  Weight: 26.4 kg

DRUGS (7)
  1. CLOBAZAM [Suspect]
     Indication: LENNOX-GASTAUT SYNDROME
     Route: 048
     Dates: start: 20100928, end: 20101109
  2. CLOBAZAM [Suspect]
     Route: 048
     Dates: start: 20100928, end: 20101108
  3. CLOBAZAM [Suspect]
     Route: 048
     Dates: start: 20101109, end: 20101117
  4. CLOBAZAM [Suspect]
     Route: 048
     Dates: start: 20101118
  5. TOPAMAX [Concomitant]
     Indication: EPILEPSY
     Route: 048
     Dates: start: 20100805
  6. PHENOBARBITAL [Concomitant]
     Indication: EPILEPSY
     Route: 048
     Dates: start: 20100324
  7. PHENOBARBITAL [Concomitant]
     Route: 048
     Dates: start: 20100324

REACTIONS (1)
  - Hepatic enzyme increased [Recovered/Resolved with Sequelae]
